FAERS Safety Report 17236127 (Version 1)
Quarter: 2019Q4

REPORT INFORMATION
  Report Type: Spontaneous
  Country: US (occurrence: US)
  Receive Date: 20191211
  Receipt Date: 20191211
  Transmission Date: 20200122
  Serious: Yes (Hospitalization)
  Sender: FDA-Public Use
  Company Number: None

PATIENT
  Age: 59 Year
  Sex: Female

DRUGS (13)
  1. COGENTIN [Concomitant]
     Active Substance: BENZTROPINE MESYLATE
  2. FLORAJEN [Concomitant]
     Active Substance: PROBIOTICS NOS
  3. BLACK COHOSH [Concomitant]
     Active Substance: BLACK COHOSH
  4. IBUPROFEN. [Concomitant]
     Active Substance: IBUPROFEN
  5. AMLODIPINE [Concomitant]
     Active Substance: AMLODIPINE BESYLATE
  6. CALCIUM [Concomitant]
     Active Substance: CALCIUM
  7. PREMAIRN VAG CRE [Concomitant]
  8. DULOXETINE. [Concomitant]
     Active Substance: DULOXETINE
  9. AIRBORNE [Concomitant]
     Active Substance: HERBALS\MINERALS\VITAMINS
  10. OMEPRAZOLE. [Concomitant]
     Active Substance: OMEPRAZOLE
  11. VIT B-12 [Concomitant]
  12. HUMIRA [Suspect]
     Active Substance: ADALIMUMAB
     Indication: ANKYLOSING SPONDYLITIS
     Route: 058
     Dates: start: 20190802
  13. MULTIVIT [Concomitant]
     Active Substance: VITAMINS

REACTIONS (3)
  - Limb operation [None]
  - Wrist surgery [None]
  - Therapy cessation [None]

NARRATIVE: CASE EVENT DATE: 20191111
